FAERS Safety Report 6740066-7 (Version None)
Quarter: 2010Q2

REPORT INFORMATION
  Report Type: 
  Country: None (occurrence: None)
  Receive Date: 20100525
  Receipt Date: 20090331
  Transmission Date: 20101027
  Serious: No
  Sender: FDA-Public Use
  Company Number: A0776393A

PATIENT
  Age: 60 Year
  Sex: Male

DRUGS (2)
  1. BACTROBAN [Suspect]
     Dosage: 1APP THREE TIMES PER DAY
     Route: 045
     Dates: start: 20090324, end: 20090330
  2. NO CONCURRENT MEDICATION [Concomitant]

REACTIONS (4)
  - DRUG DISPENSING ERROR [None]
  - DRY THROAT [None]
  - RHINORRHOEA [None]
  - WRONG DRUG ADMINISTERED [None]
